FAERS Safety Report 20182824 (Version 1)
Quarter: 2021Q4

REPORT INFORMATION
  Report Type: Spontaneous
  Country: US (occurrence: None)
  Receive Date: 20211209
  Receipt Date: 20211209
  Transmission Date: 20220303
  Serious: Yes (Other)
  Sender: FDA-Public Use
  Company Number: None

PATIENT
  Age: 68 Year
  Sex: Female

DRUGS (10)
  1. .DELTA.8-TETRAHYDROCANNABINOL\HERBALS [Suspect]
     Active Substance: .DELTA.8-TETRAHYDROCANNABINOL\HERBALS
     Dosage: FREQUENCY : AS NEEDED;?
     Route: 048
     Dates: start: 20211023
  2. .DELTA.8-TETRAHYDROCANNABINOL\HERBALS [Suspect]
     Active Substance: .DELTA.8-TETRAHYDROCANNABINOL\HERBALS
     Route: 048
     Dates: start: 20211023
  3. Pineapple Express RSO 1000 mg oral syringe [Concomitant]
     Dates: start: 20211025
  4. White Sour RSO 1000 mg oral syringe [Concomitant]
     Dates: start: 20211030
  5. Renew RSO 1000 mg oral syringe [Concomitant]
     Dates: start: 20211105
  6. Birthday Cake RSO 1000 mg oral syringe [Concomitant]
     Dates: start: 20211109
  7. Dosi-Do 300 mg Disposable Pen [Concomitant]
     Dates: start: 20211109
  8. Mint-Face Off 250 mg Disposable Pen [Concomitant]
     Dates: start: 20211115
  9. Garlic[INVALID]s RSO 1000 mg oral syringe [Concomitant]
     Dates: start: 20211115
  10. Meloxicam tablet for oral administration [Concomitant]

REACTIONS (2)
  - Sinusitis [None]
  - Drug ineffective [None]

NARRATIVE: CASE EVENT DATE: 20210101
